FAERS Safety Report 12487372 (Version 1)
Quarter: 2016Q2

REPORT INFORMATION
  Report Type: Spontaneous
  Country: US (occurrence: US)
  Receive Date: 20160622
  Receipt Date: 20160622
  Transmission Date: 20160815
  Serious: Yes (Other)
  Sender: FDA-Public Use
  Company Number: US-ZYDUS-011328

PATIENT
  Age: 43 Year
  Sex: Female

DRUGS (6)
  1. CLOPIDOGREL [Suspect]
     Active Substance: CLOPIDOGREL BISULFATE
     Indication: ISCHAEMIC STROKE
     Route: 065
  2. LOSARTAN. [Suspect]
     Active Substance: LOSARTAN
     Indication: PRODUCT USED FOR UNKNOWN INDICATION
     Route: 065
  3. ATORVASTATIN [Suspect]
     Active Substance: ATORVASTATIN
     Indication: PRODUCT USED FOR UNKNOWN INDICATION
     Route: 065
  4. ACETYLSALICYLIC ACID [Suspect]
     Active Substance: ASPIRIN
     Indication: PRODUCT USED FOR UNKNOWN INDICATION
     Route: 065
  5. CARVEDILOL/CARVEDILOL HYDROCHLODRIDE [Suspect]
     Active Substance: CARVEDILOL
     Indication: PRODUCT USED FOR UNKNOWN INDICATION
     Route: 065
  6. CLOPIDOGREL [Suspect]
     Active Substance: CLOPIDOGREL BISULFATE
     Indication: ACUTE MYOCARDIAL INFARCTION
     Route: 065

REACTIONS (12)
  - Thrombotic thrombocytopenic purpura [Recovered/Resolved]
  - Myocardial ischaemia [Recovering/Resolving]
  - Jaundice [Recovered/Resolved]
  - Ocular icterus [Recovered/Resolved]
  - Chromaturia [Recovered/Resolved]
  - Angina pectoris [Recovering/Resolving]
  - Polychromasia [Recovered/Resolved]
  - Paraesthesia [Recovered/Resolved]
  - General physical health deterioration [None]
  - Basal ganglia infarction [Recovered/Resolved]
  - Petechiae [Recovered/Resolved]
  - Fatigue [Recovered/Resolved]
